FAERS Safety Report 15790430 (Version 1)
Quarter: 2019Q1

REPORT INFORMATION
  Report Type: Spontaneous
  Country: US (occurrence: US)
  Receive Date: 20190104
  Receipt Date: 20190104
  Transmission Date: 20190417
  Serious: No
  Sender: FDA-Public Use
  Company Number: US-PFIZER INC-2019003433

PATIENT
  Age: 8 Year
  Sex: Male

DRUGS (2)
  1. GENOTROPIN MQ [Suspect]
     Active Substance: SOMATROPIN
     Dosage: 1.4 MG, DAILY
  2. GENOTROPIN MQ [Suspect]
     Active Substance: SOMATROPIN
     Indication: SEPTO-OPTIC DYSPLASIA
     Dosage: 1.2 MG, UNK

REACTIONS (5)
  - Insulin-like growth factor increased [Unknown]
  - Blood thyroid stimulating hormone decreased [Unknown]
  - Bone density increased [Unknown]
  - Product use in unapproved indication [Unknown]
  - Thyroxine increased [Unknown]

NARRATIVE: CASE EVENT DATE: 20180312
